FAERS Safety Report 21690903 (Version 1)
Quarter: 2022Q4

REPORT INFORMATION
  Report Type: Spontaneous
  Country: TR (occurrence: TR)
  Receive Date: 20221207
  Receipt Date: 20221207
  Transmission Date: 20230113
  Serious: Yes (Other)
  Sender: FDA-Public Use
  Company Number: TR-SUN PHARMACEUTICAL INDUSTRIES LTD-2022R1-366414

PATIENT
  Age: 60 Year
  Sex: Female

DRUGS (1)
  1. HYDROXYCHLOROQUINE [Suspect]
     Active Substance: HYDROXYCHLOROQUINE
     Indication: Rheumatoid arthritis
     Dosage: 400 MILLIGRAM, DAILY
     Route: 065

REACTIONS (2)
  - Toxicity to various agents [Unknown]
  - Left ventricular dysfunction [Recovered/Resolved]
